FAERS Safety Report 4441378-2 (Version None)
Quarter: 2004Q3

REPORT INFORMATION
  Report Type: 
  Country: None (occurrence: None)
  Receive Date: 20040728
  Receipt Date: 20040218
  Transmission Date: 20050211
  Serious: No
  Sender: FDA-Public Use
  Company Number: USA040259754

PATIENT
  Age: 16 Year
  Sex: Male

DRUGS (1)
  1. STRATTERA [Suspect]
     Dosage: 50 MG/L DAY
     Dates: start: 20030601

REACTIONS (2)
  - ANOREXIA [None]
  - SOMNOLENCE [None]
